FAERS Safety Report 7392522 (Version 1)
Quarter: 2020Q3

REPORT INFORMATION
  Report Type: Report from Study
  Country: US (occurrence: US)
  Receive Date: 20100519
  Receipt Date: 20100519
  Transmission Date: 20201105
  Serious: Yes (Other)
  Sender: FDA-Public Use
  Company Number: US-JNJFOC-20100503522

PATIENT
  Age: 49 Year
  Sex: Female
  Weight: 63.5 kg

DRUGS (4)
  1. CISAPRIDE [Suspect]
     Active Substance: CISAPRIDE
     Indication: GASTROINTESTINAL MOTILITY DISORDER
     Dosage: AND AT HOUR OF SLEEP
     Route: 048
  2. CISAPRIDE [Suspect]
     Active Substance: CISAPRIDE
     Indication: GASTROOESOPHAGEAL REFLUX DISEASE
     Dosage: AND AT HOUR OF SLEEP
     Route: 048
  3. CISAPRIDE [Suspect]
     Active Substance: CISAPRIDE
     Dosage: AND AT HOUR OF SLEEP
     Route: 048
  4. CISAPRIDE [Suspect]
     Active Substance: CISAPRIDE
     Dosage: AND AT HOUR OF SLEEP
     Route: 048

REACTIONS (1)
  - Electrocardiogram QT prolonged [Not Recovered/Not Resolved]

NARRATIVE: CASE EVENT DATE: 20100412
